FAERS Safety Report 7951770-7 (Version None)
Quarter: 2011Q4

REPORT INFORMATION
  Report Type: 
  Country: None (occurrence: None)
  Receive Date: 20111201
  Receipt Date: 20111122
  Transmission Date: 20120403
  Serious: Yes (Hospitalization, Other)
  Sender: FDA-Public Use
  Company Number: US-BAYER-2011-076299

PATIENT
  Sex: Female

DRUGS (2)
  1. COPAXONE [Concomitant]
     Dosage: UNK
     Dates: start: 20081008
  2. BETASERON [Suspect]
     Dosage: UNK
     Route: 058
     Dates: start: 20010901, end: 20080901

REACTIONS (2)
  - ADVERSE DRUG REACTION [None]
  - BREAST CANCER [None]
